FAERS Safety Report 13824728 (Version 1)
Quarter: 2017Q3

REPORT INFORMATION
  Report Type: Spontaneous
  Country: US (occurrence: US)
  Receive Date: 20170801
  Receipt Date: 20170801
  Transmission Date: 20171127
  Serious: Yes (Other)
  Sender: FDA-Public Use
  Company Number: None

PATIENT
  Age: 28 Year
  Sex: Male
  Weight: 59.67 kg

DRUGS (2)
  1. NEURONTIN [Concomitant]
     Active Substance: GABAPENTIN
  2. BUPRENORPHINE NALOXONE [Suspect]
     Active Substance: BUPRENORPHINE\NALOXONE
     Indication: DRUG DEPENDENCE
     Route: 060
     Dates: start: 20170725, end: 20170801

REACTIONS (7)
  - Glossodynia [None]
  - Headache [None]
  - Tongue discomfort [None]
  - Wrong technique in product usage process [None]
  - Product substitution issue [None]
  - Pain [None]
  - Mucosal excoriation [None]

NARRATIVE: CASE EVENT DATE: 20170728
